FAERS Safety Report 26134863 (Version 1)
Quarter: 2025Q4

REPORT INFORMATION
  Report Type: Spontaneous
  Country: US (occurrence: US)
  Receive Date: 20251209
  Receipt Date: 20251209
  Transmission Date: 20260118
  Serious: Yes (Life-Threatening, Hospitalization)
  Sender: MYLAN
  Company Number: US-MYLANLABS-2025M1102829

PATIENT
  Age: 40 Year
  Sex: Female

DRUGS (2)
  1. METFORMIN [Interacting]
     Active Substance: METFORMIN HYDROCHLORIDE
     Indication: Type 2 diabetes mellitus
     Dosage: 1500 MILLIGRAM
  2. EMPAGLIFLOZIN [Concomitant]
     Active Substance: EMPAGLIFLOZIN
     Indication: Type 2 diabetes mellitus
     Dosage: UNK

REACTIONS (5)
  - Lactic acidosis [Recovered/Resolved]
  - Drug-disease interaction [Recovered/Resolved]
  - Shock [Recovered/Resolved]
  - Lung opacity [Recovered/Resolved]
  - Metabolic acidosis [Recovered/Resolved]
